FAERS Safety Report 19701272 (Version 1)
Quarter: 2021Q3

REPORT INFORMATION
  Report Type: Spontaneous
  Country: GB (occurrence: GB)
  Receive Date: 20210814
  Receipt Date: 20210814
  Transmission Date: 20211014
  Serious: Yes (Other)
  Sender: FDA-Public Use
  Company Number: NVSC2021GB178406

PATIENT
  Age: 42 Year
  Weight: 84 kg

DRUGS (16)
  1. MONOMIL [Concomitant]
     Active Substance: ISOSORBIDE MONONITRATE
     Indication: ILL-DEFINED DISORDER
     Dosage: 0.5 DF (TAKE HALF TABLET EACH MORNING AS PER CARDIOLOGY)
     Route: 065
     Dates: start: 20210128
  2. ATORVASTATIN [Concomitant]
     Active Substance: ATORVASTATIN
     Indication: ILL-DEFINED DISORDER
     Dosage: TAKE ONE IN THE EVENING TO LOWER CHOLESTEROL LE...
     Route: 065
     Dates: start: 20200601
  3. DOCUSATE SODIUM. [Concomitant]
     Active Substance: DOCUSATE SODIUM
     Indication: ILL-DEFINED DISORDER
     Dosage: ONE TO BE TAKEN TWICE DAILY
     Route: 065
     Dates: start: 20210419
  4. SALBUTAMOL [Concomitant]
     Active Substance: ALBUTEROL
     Indication: ILL-DEFINED DISORDER
     Dosage: ONE OR TWO PUFFS TO BE INHALED FOUR TIMES A DAY...
     Route: 065
     Dates: start: 20200316
  5. PENICILLIN V POTASSIUM. [Suspect]
     Active Substance: PENICILLIN V POTASSIUM
     Indication: ILL-DEFINED DISORDER
     Dosage: UNK
     Route: 065
     Dates: start: 20210804
  6. INVITA D3 [Concomitant]
     Indication: ILL-DEFINED DISORDER
     Dosage: 1 DF, QW (01 AMPOULE WEEKLY FOR 6W)
     Route: 065
     Dates: start: 20210722
  7. METFORMIN [Concomitant]
     Active Substance: METFORMIN HYDROCHLORIDE
     Indication: ILL-DEFINED DISORDER
     Dosage: 1 DF, QD
     Route: 065
     Dates: start: 20210506, end: 20210624
  8. ATORVASTATIN [Concomitant]
     Active Substance: ATORVASTATIN
     Indication: BLOOD CHOLESTEROL INCREASED
  9. HYOSCINE BUTYLBROMIDE [Concomitant]
     Active Substance: BUTYLSCOPOLAMINE BROMIDE
     Indication: ILL-DEFINED DISORDER
     Dosage: 2 DF, QID
     Route: 065
     Dates: start: 20200316
  10. PREGABALIN. [Concomitant]
     Active Substance: PREGABALIN
     Indication: ILL-DEFINED DISORDER
     Dosage: 1 DF, BID
     Route: 065
     Dates: start: 20210128
  11. GLYCERYL TRINITRATE [Concomitant]
     Active Substance: NITROGLYCERIN
     Indication: ILL-DEFINED DISORDER
     Dosage: ONE PUFF AS NEEDED
     Route: 065
     Dates: start: 20200131
  12. NEFOPAM [Concomitant]
     Active Substance: NEFOPAM
     Indication: ILL-DEFINED DISORDER
     Dosage: ONE OR TWO TO BE TAKEN THREE TIMES A DAY
     Route: 065
     Dates: start: 20200316
  13. OMEPRAZOLE. [Concomitant]
     Active Substance: OMEPRAZOLE
     Indication: ILL-DEFINED DISORDER
     Dosage: 1 DF, QD
     Route: 065
     Dates: start: 20210419
  14. SUKKARTO [Concomitant]
     Active Substance: METFORMIN HYDROCHLORIDE
     Indication: ILL-DEFINED DISORDER
     Dosage: 1 DF, QD (WITH EVENING MEAL)
     Route: 065
     Dates: start: 20210624
  15. AMITRIPTYLINE HYDROCHLORIDE. [Concomitant]
     Active Substance: AMITRIPTYLINE HYDROCHLORIDE
     Indication: ILL-DEFINED DISORDER
     Dosage: BID
     Route: 065
     Dates: start: 20200316
  16. RANOLAZINE. [Concomitant]
     Active Substance: RANOLAZINE
     Indication: ILL-DEFINED DISORDER
     Dosage: 1 DF, BID
     Route: 065
     Dates: start: 20200131

REACTIONS (1)
  - Adverse drug reaction [Recovered/Resolved]

NARRATIVE: CASE EVENT DATE: 20210804
